FAERS Safety Report 23999869 (Version 6)
Quarter: 2024Q4

REPORT INFORMATION
  Report Type: Spontaneous
  Country: US (occurrence: US)
  Receive Date: 20240621
  Receipt Date: 20241118
  Transmission Date: 20250114
  Serious: Yes (Hospitalization)
  Sender: ROCHE
  Company Number: US-ROCHE-10000000572

PATIENT
  Age: 6 Year
  Sex: Male

DRUGS (3)
  1. HEMLIBRA [Suspect]
     Active Substance: EMICIZUMAB-KXWH
     Indication: Factor VIII deficiency
     Dosage: STRENGTH: 105MG/0.7ML
     Route: 058
     Dates: start: 201905
  2. epinephrine jr auto inj 2pk [Concomitant]
  3. alphanate inj [Concomitant]

REACTIONS (2)
  - Pyrexia [Unknown]
  - Bacterial infection [Unknown]

NARRATIVE: CASE EVENT DATE: 20240603
